FAERS Safety Report 11652115 (Version 1)
Quarter: 2015Q4

REPORT INFORMATION
  Report Type: Spontaneous
  Country: US (occurrence: US)
  Receive Date: 20151022
  Receipt Date: 20151022
  Transmission Date: 20160304
  Serious: No
  Sender: FDA-Public Use
  Company Number: US-PFIZER INC-2015352756

PATIENT

DRUGS (1)
  1. TOFACITINIB [Suspect]
     Active Substance: TOFACITINIB
     Indication: NEPHROPATHY TOXIC
     Dosage: 5 MG, 1X/DAY

REACTIONS (3)
  - Product use issue [Unknown]
  - Blood immunoglobulin G abnormal [Unknown]
  - Skin ulcer [Unknown]
